FAERS Safety Report 20919728 (Version 1)
Quarter: 2022Q2

REPORT INFORMATION
  Report Type: Spontaneous
  Country: US (occurrence: US)
  Receive Date: 20220606
  Receipt Date: 20220606
  Transmission Date: 20220720
  Serious: No
  Sender: FDA-Public Use
  Company Number: US-BRISTOL-MYERS SQUIBB COMPANY-2022-038022

PATIENT
  Age: 65 Year
  Sex: Male
  Weight: 103 kg

DRUGS (1)
  1. REVLIMID [Suspect]
     Active Substance: LENALIDOMIDE
     Indication: Plasma cell myeloma
     Dosage: 1 CAPSULE DAILY BY MOUTH.?1ST SHIP FROM ACCREDO-29-JAN-2021
     Route: 048
     Dates: end: 20220315

REACTIONS (1)
  - Platelet count decreased [Unknown]
